FAERS Safety Report 6882999-7 (Version None)
Quarter: 2010Q3

REPORT INFORMATION
  Report Type: 
  Country: None (occurrence: None)
  Receive Date: 20100727
  Receipt Date: 20100719
  Transmission Date: 20110219
  Serious: Yes (Other)
  Sender: FDA-Public Use
  Company Number: US-AMGEN-QUU425265

PATIENT
  Sex: Male

DRUGS (6)
  1. ARANESP [Suspect]
     Indication: PRODUCT USED FOR UNKNOWN INDICATION
     Dates: start: 20050101
  2. METOPROLOL TARTRATE [Concomitant]
  3. ANAGRELIDE HCL [Concomitant]
  4. HYDROXYUREA [Concomitant]
  5. AMLODIPINE [Concomitant]
  6. UNSPECIFIED VITAMINS [Concomitant]

REACTIONS (2)
  - HAEMOGLOBIN ABNORMAL [None]
  - LETHARGY [None]
